FAERS Safety Report 12717962 (Version 2)
Quarter: 2019Q3

REPORT INFORMATION
  Report Type: Report from Study
  Country: MX (occurrence: MX)
  Receive Date: 20160906
  Receipt Date: 20190908
  Transmission Date: 20191004
  Serious: No
  Sender: FDA-Public Use
  Company Number: MX-INCYTE CORPORATION-2016IN005376

PATIENT

DRUGS (4)
  1. HYDREA [Concomitant]
     Active Substance: HYDROXYUREA
     Dosage: 2 DF, UNK
     Route: 048
     Dates: start: 2009
  2. HYDREA [Concomitant]
     Active Substance: HYDROXYUREA
     Indication: ESSENTIAL THROMBOCYTHAEMIA
     Dosage: 6 DF, UNK
     Route: 048
  3. ACETYLSALICYLIC ACID [Concomitant]
     Active Substance: ASPIRIN
     Indication: PRODUCT USED FOR UNKNOWN INDICATION
     Dosage: 1 OT, QW3 (MONDAY, WEDNESDAY AND FRIDAY)
     Route: 048
     Dates: start: 2009
  4. JAKAVI [Suspect]
     Active Substance: RUXOLITINIB
     Indication: ESSENTIAL THROMBOCYTHAEMIA
     Dosage: 1 DF, QD
     Route: 048
     Dates: start: 201603, end: 201606

REACTIONS (12)
  - Drug ineffective [Unknown]
  - Fatigue [Unknown]
  - Abdominal discomfort [Recovered/Resolved]
  - Platelet count abnormal [Unknown]
  - Drug intolerance [Unknown]
  - Anxiety [Unknown]
  - Platelet count increased [Recovered/Resolved]
  - Product use in unapproved indication [Unknown]
  - Platelet count increased [Unknown]
  - Nausea [Unknown]
  - Malaise [Recovered/Resolved]
  - Diarrhoea [Recovered/Resolved]

NARRATIVE: CASE EVENT DATE: 201603
